FAERS Safety Report 5092267-4 (Version None)
Quarter: 2006Q3

REPORT INFORMATION
  Report Type: 
  Country: None (occurrence: None)
  Receive Date: 20060825
  Receipt Date: 20060809
  Transmission Date: 20061208
  Serious: Yes (Hospitalization)
  Sender: FDA-Public Use
  Company Number: US200608002017

PATIENT
  Age: 66 Year
  Sex: Male

DRUGS (4)
  1. HUMALOG [Suspect]
     Indication: DIABETES MELLITUS
     Dates: start: 20050601
  2. LANTUS [Concomitant]
  3. ZOCOR [Concomitant]
  4. CRESTOR [Concomitant]

REACTIONS (10)
  - ASTHENIA [None]
  - BLOOD GLUCOSE FLUCTUATION [None]
  - FACIAL PAIN [None]
  - FEELING ABNORMAL [None]
  - FOOD ALLERGY [None]
  - HEART VALVE STENOSIS [None]
  - MUSCULOSKELETAL STIFFNESS [None]
  - PAIN [None]
  - PRURITUS [None]
  - STOMACH DISCOMFORT [None]
